FAERS Safety Report 9706660 (Version 2)
Quarter: 2014Q1

REPORT INFORMATION
  Report Type: Spontaneous
  Country: AU (occurrence: AU)
  Receive Date: 20131125
  Receipt Date: 20140126
  Transmission Date: 20141002
  Serious: Yes (Disabling, Other)
  Sender: FDA-Public Use
  Company Number: AU-ROCHE-1307261

PATIENT
  Age: 81 Year
  Sex: 0

DRUGS (1)
  1. ACTILYSE [Suspect]
     Indication: CEREBRAL INFARCTION
     Route: 065
     Dates: start: 20130103

REACTIONS (2)
  - Hemiplegia [Unknown]
  - Confusional state [Unknown]
